FAERS Safety Report 8867074 (Version 1)
Quarter: 2012Q4

REPORT INFORMATION
  Report Type: 
  Country: US (occurrence: US)
  Receive Date: 20121025
  Receipt Date: 20121025
  Transmission Date: 20130627
  Serious: No
  Sender: FDA-Public Use
  Company Number: US-AMGEN-USASP2012014596

PATIENT
  Sex: Female
  Weight: 88.44 kg

DRUGS (13)
  1. ENBREL [Suspect]
     Indication: PRODUCT USED FOR UNKNOWN INDICATION
     Dosage: 25 mg, 2 times/wk
     Dates: start: 1998
  2. CALCIUM [Concomitant]
  3. METHOTREXATE [Concomitant]
     Dosage: 2.5 mg, UNK
  4. EYE DROPS [Concomitant]
  5. FOLIC ACID [Concomitant]
     Dosage: 20 mg, UNK
  6. PAXIL [Concomitant]
     Dosage: 20 mg, UNK
  7. VOLTAREN                           /00372301/ [Concomitant]
     Dosage: 75 mg, UNK
  8. NORCO [Concomitant]
  9. TYLENOL /00020001/ [Concomitant]
     Dosage: 325 mg, UNK
  10. REMICADE [Concomitant]
  11. HUMIRA [Concomitant]
  12. ORENCIA [Concomitant]
  13. KINERET [Concomitant]

REACTIONS (1)
  - Rash [Recovering/Resolving]
